FAERS Safety Report 6572698-3 (Version None)
Quarter: 2010Q1

REPORT INFORMATION
  Report Type: 
  Country: None (occurrence: None)
  Receive Date: 20100205
  Receipt Date: 20100125
  Transmission Date: 20100710
  Serious: Yes (Death, Hospitalization)
  Sender: FDA-Public Use
  Company Number: US-JNJFOC-20051105002

PATIENT
  Age: 3 Year
  Sex: Female

DRUGS (2)
  1. ACETAMINOPHEN [Suspect]
     Indication: UPPER RESPIRATORY TRACT INFECTION
     Dosage: TOTAL OF 5040 MG WITHIN 24 HOURS
  2. ACETAMINOPHEN [Suspect]
     Dosage: TOTAL OF 3 DOSES (360 MG)

REACTIONS (3)
  - HEPATIC NECROSIS [None]
  - OVERDOSE [None]
  - RENAL NECROSIS [None]
